FAERS Safety Report 21336201 (Version 1)
Quarter: 2022Q3

REPORT INFORMATION
  Report Type: Spontaneous
  Country: DE (occurrence: DE)
  Receive Date: 20220915
  Receipt Date: 20220915
  Transmission Date: 20221027
  Serious: Yes (Hospitalization)
  Sender: FDA-Public Use
  Company Number: DE-NOVARTISPH-NVSC2022DE205811

PATIENT
  Age: 90 Year
  Sex: Female
  Weight: 57.3 kg

DRUGS (7)
  1. LORAZEPAM [Suspect]
     Active Substance: LORAZEPAM
     Indication: Product used for unknown indication
     Dosage: 0.5 MG, QD (0-0-1-0, TABLETTEN)
     Route: 048
  2. TAPENTADOL [Suspect]
     Active Substance: TAPENTADOL
     Indication: Product used for unknown indication
     Dosage: 50 MG, BID (1-0-1-0, RETARD-TABLETTEN)
     Route: 048
  3. TORSEMIDE [Concomitant]
     Active Substance: TORSEMIDE
     Indication: Product used for unknown indication
     Dosage: 5 MG, BID (2-2-0-0, TABLETTEN)
     Route: 048
  4. PANTOPRAZOLE SODIUM [Concomitant]
     Active Substance: PANTOPRAZOLE SODIUM
     Indication: Product used for unknown indication
     Dosage: 40 MG, QD (1-0-0-0, TABLETTEN)
     Route: 048
  5. ASPIRIN [Concomitant]
     Active Substance: ASPIRIN
     Indication: Product used for unknown indication
     Dosage: 100 MG, QD (0-1-0-0, TABLETTEN)
     Route: 048
  6. SICCAPROTECT [Concomitant]
     Indication: Product used for unknown indication
     Dosage: UNK UNK, TID (1-1-1-0, TROPFEN)
  7. THIAMINE [Concomitant]
     Active Substance: THIAMINE
     Indication: Product used for unknown indication
     Dosage: 200 MG, QD (1-0-0-0, TABLETTEN)
     Route: 048

REACTIONS (4)
  - Depressed mood [Unknown]
  - Product prescribing error [Unknown]
  - Product prescribing error [Unknown]
  - Dizziness [Unknown]
